FAERS Safety Report 7490073-4 (Version None)
Quarter: 2011Q2

REPORT INFORMATION
  Report Type: 
  Country: None (occurrence: None)
  Receive Date: 20110519
  Receipt Date: 20101207
  Transmission Date: 20111010
  Serious: Yes (Hospitalization)
  Sender: FDA-Public Use
  Company Number: US-BAYER-201028984NA

PATIENT
  Age: 36 Year
  Sex: Female
  Weight: 72.109 kg

DRUGS (22)
  1. MECLIZINE [Concomitant]
  2. TYLENOL ES [Concomitant]
     Dosage: 1000 MG, UNK
  3. ACETAMINOPHEN AND HYDROCODONE BITARTRATE [Concomitant]
  4. BENTYL [Concomitant]
  5. YAZ [Suspect]
     Indication: PREMENSTRUAL SYNDROME
     Dosage: UNK
     Dates: start: 20060401, end: 20091105
  6. YASMIN [Suspect]
     Indication: PRODUCT USED FOR UNKNOWN INDICATION
  7. ATENOLOL [Concomitant]
  8. IBUPROFEN [Concomitant]
  9. NASONEX [Concomitant]
     Dosage: 50 UNK, UNK
  10. DROSPIRENONE AND ETHINYL ESTRADIOL [Suspect]
     Indication: PRODUCT USED FOR UNKNOWN INDICATION
  11. MULTI-VITAMIN [Concomitant]
  12. LIDODERM [Concomitant]
  13. CYCLOBENZAPRINE [Concomitant]
     Dosage: 10 MG, UNK
  14. AMITRIPTYLINE HCL [Concomitant]
  15. ASTELIN [Concomitant]
     Indication: MULTIPLE ALLERGIES
     Dosage: UNK
     Dates: start: 20070101
  16. NEXIUM [Concomitant]
     Dosage: 40 MG, UNK
  17. MACROBID [Concomitant]
     Dosage: 100 MG, UNK
  18. CYMBALTA [Concomitant]
  19. VENTOLIN [Concomitant]
     Indication: ASTHMA
     Dosage: UNK
  20. COLACE [Concomitant]
     Dosage: 100 MG, BID
  21. RANITIDINE [Concomitant]
     Dosage: 150 MG, UNK
  22. MIRALAX [Concomitant]
     Dosage: 17 UNK, UNK

REACTIONS (2)
  - CHOLECYSTITIS ACUTE [None]
  - INJURY [None]
